FAERS Safety Report 13572424 (Version 1)
Quarter: 2017Q2

REPORT INFORMATION
  Report Type: Report from Study
  Country: FR (occurrence: FR)
  Receive Date: 20170523
  Receipt Date: 20170523
  Transmission Date: 20170830
  Serious: Yes (Other)
  Sender: FDA-Public Use
  Company Number: FR-PFIZER INC-2017167177

PATIENT
  Age: 71 Year
  Sex: Female

DRUGS (4)
  1. AROMASINE [Suspect]
     Active Substance: EXEMESTANE
  2. FULVESTRANT [Concomitant]
     Active Substance: FULVESTRANT
     Dosage: UNK
     Dates: start: 20160721, end: 20170104
  3. PALBOCICLIB [Suspect]
     Active Substance: PALBOCICLIB
     Indication: BREAST CANCER
     Dosage: 125 MG, DAILY (3 WEEKS ON 1 WEEK OFF)
     Route: 048
     Dates: start: 20160727, end: 20170104
  4. AFINITOR [Suspect]
     Active Substance: EVEROLIMUS

REACTIONS (6)
  - Asthenia [Recovered/Resolved]
  - Thrombocytopenia [Recovered/Resolved]
  - Neutropenia [Not Recovered/Not Resolved]
  - Anaemia [Recovered/Resolved]
  - Nausea [Recovered/Resolved]
  - Mouth ulceration [Unknown]

NARRATIVE: CASE EVENT DATE: 201608
